FAERS Safety Report 6335273-1 (Version None)
Quarter: 2009Q3

REPORT INFORMATION
  Report Type: 
  Country: None (occurrence: None)
  Receive Date: 20090831
  Receipt Date: 20090821
  Transmission Date: 20100115
  Serious: Yes (Hospitalization, Other)
  Sender: FDA-Public Use
  Company Number: US-ABBOTT-09P-163-0591513-00

PATIENT
  Sex: Female

DRUGS (2)
  1. HUMIRA [Suspect]
     Indication: PSORIASIS
     Dosage: (80 MG DAY 1)
     Dates: start: 20090601
  2. HUMIRA [Suspect]

REACTIONS (12)
  - CALCIUM METABOLISM DISORDER [None]
  - CHILLS [None]
  - DIARRHOEA [None]
  - DRUG DOSE OMISSION [None]
  - HYPOPARATHYROIDISM [None]
  - INFECTION [None]
  - MEMORY IMPAIRMENT [None]
  - MUSCLE STRAIN [None]
  - PSORIASIS [None]
  - PYREXIA [None]
  - SKIN HAEMORRHAGE [None]
  - VOMITING [None]
